FAERS Safety Report 8080637-1 (Version None)
Quarter: 2012Q1

REPORT INFORMATION
  Report Type: 
  Country: None (occurrence: None)
  Receive Date: 20120130
  Receipt Date: 20120117
  Transmission Date: 20120608
  Serious: Yes (Hospitalization)
  Sender: FDA-Public Use
  Company Number: US-ROCHE-1002236

PATIENT
  Age: 71 Year
  Sex: Female
  Weight: 72.4 kg

DRUGS (3)
  1. VINORELBINE TARTRATE [Suspect]
     Indication: NON-SMALL CELL LUNG CANCER
     Dosage: OVER 10 MIN ON DAYS 1 AND 8
     Route: 042
     Dates: start: 20110719
  2. CISPLATIN [Suspect]
     Indication: NON-SMALL CELL LUNG CANCER
     Dosage: OVER 60 MIN ON DAY 1
     Route: 042
     Dates: start: 20110719
  3. AVASTIN [Suspect]
     Indication: NON-SMALL CELL LUNG CANCER
     Dosage: OVER 30-90 MIN ON DAY 1,AFTER 4 CYCLES: 15 MG/KG IV OVER 30-90 MIN ON DAY 1Q 3 WKS, FOR UP TO 1 YEAR
     Route: 042
     Dates: start: 20110719

REACTIONS (9)
  - DECREASED APPETITE [None]
  - VOMITING [None]
  - MYOCARDIAL INFARCTION [None]
  - FATIGUE [None]
  - NAUSEA [None]
  - ANAEMIA [None]
  - NEUTROPHIL COUNT DECREASED [None]
  - BLOOD CREATININE INCREASED [None]
  - CARDIAC ARREST [None]
